FAERS Safety Report 5415694-1 (Version None)
Quarter: 2007Q3

REPORT INFORMATION
  Report Type: 
  Country: None (occurrence: None)
  Receive Date: 20070718
  Receipt Date: 20070320
  Transmission Date: 20080115
  Serious: Yes (Hospitalization, Other)
  Sender: FDA-Public Use
  Company Number: 2007023042

PATIENT
  Age: 49 Year
  Sex: Male
  Weight: 137.4 kg

DRUGS (2)
  1. CELEBREX [Suspect]
     Indication: CARPAL TUNNEL SYNDROME
     Dosage: 200 MG (200 MG, 1 IN 1 D), ORAL
     Route: 048
     Dates: start: 20000615
  2. VIOXX [Suspect]
     Dosage: ORAL
     Route: 048

REACTIONS (3)
  - CHEST PAIN [None]
  - COLITIS [None]
  - CORONARY ARTERY DISEASE [None]
